FAERS Safety Report 12926694 (Version 2)
Quarter: 2016Q4

REPORT INFORMATION
  Report Type: Report from Study
  Country: US (occurrence: US)
  Receive Date: 20161108
  Receipt Date: 20161123
  Transmission Date: 20170207
  Serious: Yes (Other)
  Sender: FDA-Public Use
  Company Number: US-MALLINCKRODT-T201605474

PATIENT
  Sex: Female

DRUGS (1)
  1. REPOSITORY CORTICOTROPIN INJECTION [Suspect]
     Active Substance: CORTICOTROPIN
     Indication: SYSTEMIC LUPUS ERYTHEMATOSUS
     Dosage: 80 UNITS ONCE DAILY
     Route: 058
     Dates: start: 20160518

REACTIONS (12)
  - Myalgia [Unknown]
  - Peripheral swelling [Unknown]
  - Fluid retention [Unknown]
  - Constipation [Recovered/Resolved]
  - Bladder disorder [Unknown]
  - Coagulation time prolonged [Unknown]
  - Contusion [Unknown]
  - Epistaxis [Unknown]
  - Sinus disorder [Unknown]
  - Weight decreased [Unknown]
  - Pain [Unknown]
  - Haemorrhage [Unknown]

NARRATIVE: CASE EVENT DATE: 2016
